FAERS Safety Report 6217915-4 (Version None)
Quarter: 2009Q2

REPORT INFORMATION
  Report Type: 
  Country: None (occurrence: None)
  Receive Date: 20090608
  Receipt Date: 20090527
  Transmission Date: 20091009
  Serious: Yes (Other)
  Sender: FDA-Public Use
  Company Number: IR-BAYER-200922216GPV

PATIENT
  Age: 19 Year
  Sex: Female

DRUGS (1)
  1. YASMIN [Suspect]
     Indication: OLIGOMENORRHOEA
     Route: 048
     Dates: start: 20090312, end: 20090317

REACTIONS (1)
  - SOMNOLENCE [None]
